FAERS Safety Report 4668219-2 (Version None)
Quarter: 2005Q2

REPORT INFORMATION
  Report Type: 
  Country: None (occurrence: None)
  Receive Date: 20050523
  Receipt Date: 20050216
  Transmission Date: 20051028
  Serious: Yes (Other)
  Sender: FDA-Public Use
  Company Number: PHEH2005US02140

PATIENT
  Age: 62 Year
  Sex: Female

DRUGS (7)
  1. ZOMETA [Suspect]
     Indication: BREAST CANCER METASTATIC
     Dosage: 4 MG, UNK
     Dates: start: 20020401
  2. FEMARA [Concomitant]
     Dates: end: 20050106
  3. AROMASIN [Concomitant]
     Dates: start: 20050106
  4. SYNTHROID [Concomitant]
  5. TAXOTERE [Concomitant]
     Dates: start: 20020501
  6. ADRIAMYCIN PFS [Concomitant]
     Dates: start: 20020501
  7. DECADRON                                /CAN/ [Concomitant]

REACTIONS (5)
  - ARTHRALGIA [None]
  - GASTROOESOPHAGEAL REFLUX DISEASE [None]
  - JAW DISORDER [None]
  - LOCAL SWELLING [None]
  - OSTEONECROSIS [None]
